FAERS Safety Report 12891487 (Version 1)
Quarter: 2016Q4

REPORT INFORMATION
  Report Type: Spontaneous
  Country: US (occurrence: US)
  Receive Date: 20161026
  Receipt Date: 20161026
  Transmission Date: 20170207
  Serious: Yes (Other)
  Sender: FDA-Public Use
  Company Number: None

PATIENT
  Age: 5 Month
  Sex: Female
  Weight: 63 kg

DRUGS (6)
  1. UCERIS [Concomitant]
     Active Substance: BUDESONIDE
  2. TYLENOL [Concomitant]
     Active Substance: ACETAMINOPHEN
  3. ZYRTEC [Concomitant]
     Active Substance: CETIRIZINE HYDROCHLORIDE
  4. PROBIOTICS [Concomitant]
     Active Substance: PROBIOTICS NOS
  5. HUMIRA [Suspect]
     Active Substance: ADALIMUMAB
     Indication: CROHN^S DISEASE
     Dosage: ?          QUANTITY:1 INJECTION(S);OTHER FREQUENCY:1X  EVERY TWO WEEK;?
     Route: 058
     Dates: start: 20160701, end: 20161014
  6. FLOTICASINE [Concomitant]

REACTIONS (1)
  - Basal cell carcinoma [None]

NARRATIVE: CASE EVENT DATE: 20161020
